FAERS Safety Report 9626864 (Version 1)
Quarter: 2013Q4

REPORT INFORMATION
  Report Type: Spontaneous
  Country: US (occurrence: None)
  Receive Date: 20131011
  Receipt Date: 20131011
  Transmission Date: 20140711
  Serious: Yes (Hospitalization)
  Sender: FDA-Public Use
  Company Number: FK201304470

PATIENT
  Age: 14 Year
  Sex: Male

DRUGS (2)
  1. PIPERACILLIN/TAZOBACTAM [Suspect]
     Indication: PYREXIA
  2. VANCOMYCIN (VANCOMYCIN) [Concomitant]

REACTIONS (2)
  - Nephropathy toxic [None]
  - Tubulointerstitial nephritis [None]
